FAERS Safety Report 5876122-5 (Version None)
Quarter: 2008Q3

REPORT INFORMATION
  Report Type: 
  Country: None (occurrence: None)
  Receive Date: 20080905
  Receipt Date: 20080827
  Transmission Date: 20090109
  Serious: Yes (Death)
  Sender: FDA-Public Use
  Company Number: 2008-02736

PATIENT
  Age: 58 Year
  Sex: Male
  Weight: 55 kg

DRUGS (1)
  1. VELCADE [Suspect]
     Indication: MULTIPLE MYELOMA
     Dosage: INTRAVENOUS
     Route: 042
     Dates: start: 20080428, end: 20080508

REACTIONS (2)
  - DISEASE PROGRESSION [None]
  - NEOPLASM [None]
